FAERS Safety Report 10783036 (Version 2)
Quarter: 2015Q1

REPORT INFORMATION
  Report Type: Spontaneous
  Country: US (occurrence: US)
  Receive Date: 20150210
  Receipt Date: 20150303
  Transmission Date: 20150721
  Serious: Yes (Other)
  Sender: FDA-Public Use
  Company Number: US-PFIZER INC-2015051214

PATIENT
  Age: 62 Year
  Sex: Female

DRUGS (1)
  1. DUAVEE [Suspect]
     Active Substance: BAZEDOXIFENE ACETATE\ESTROGENS, CONJUGATED
     Indication: OSTEOPOROSIS POSTMENOPAUSAL
     Dosage: UNK UNK, 1X/DAY
     Route: 048

REACTIONS (2)
  - Haemorrhage [Unknown]
  - Deep vein thrombosis [Not Recovered/Not Resolved]
